FAERS Safety Report 7023993-5 (Version None)
Quarter: 2010Q3

REPORT INFORMATION
  Report Type: 
  Country: None (occurrence: None)
  Receive Date: 20100929
  Receipt Date: 20100915
  Transmission Date: 20110219
  Serious: Yes (Other)
  Sender: FDA-Public Use
  Company Number: US-ACCORD-006138

PATIENT
  Age: 85 Year
  Sex: Male

DRUGS (6)
  1. FINASTERIDE [Suspect]
     Indication: BENIGN PROSTATIC HYPERPLASIA
     Dosage: 5 MG 1 PER 1 DAYS ORAL
     Route: 048
     Dates: start: 20100802, end: 20100904
  2. DIOVAN (DIOVAN) [Concomitant]
  3. ASA (ASA) [Concomitant]
  4. ATENOLOL [Concomitant]
  5. LIPITOR [Concomitant]
  6. NORVASC (NORVASC) [Concomitant]

REACTIONS (3)
  - NOCTURIA [None]
  - PRODUCT QUALITY ISSUE [None]
  - PRODUCT SUBSTITUTION ISSUE [None]
